FAERS Safety Report 5614623-5 (Version None)
Quarter: 2008Q1

REPORT INFORMATION
  Report Type: 
  Country: None (occurrence: None)
  Receive Date: 20080131
  Receipt Date: 20080117
  Transmission Date: 20080703
  Serious: No
  Sender: FDA-Public Use
  Company Number: 002#2#2008-00019

PATIENT
  Age: 77 Year
  Sex: Male
  Weight: 90.7194 kg

DRUGS (8)
  1. NEURO-PATCH-DOSE-UNKNOWN (ROTIGOTINE) [Suspect]
     Indication: PARKINSON'S DISEASE
     Dosage: 6MG/24H, 1 IN 1 D, TRANSDERMAL, 4MG/24H, 1 IN 1 D, TRANSDERMAL, 2MG, 24H, 1 IN 1 D, TRANSDERMAL
     Route: 062
     Dates: start: 20071001, end: 20071101
  2. NEURO-PATCH-DOSE-UNKNOWN (ROTIGOTINE) [Suspect]
     Indication: PARKINSON'S DISEASE
     Dosage: 6MG/24H, 1 IN 1 D, TRANSDERMAL, 4MG/24H, 1 IN 1 D, TRANSDERMAL, 2MG, 24H, 1 IN 1 D, TRANSDERMAL
     Route: 062
     Dates: start: 20071001, end: 20071101
  3. NEURO-PATCH-DOSE-UNKNOWN (ROTIGOTINE) [Suspect]
     Indication: PARKINSON'S DISEASE
     Dosage: 6MG/24H, 1 IN 1 D, TRANSDERMAL, 4MG/24H, 1 IN 1 D, TRANSDERMAL, 2MG, 24H, 1 IN 1 D, TRANSDERMAL
     Route: 062
     Dates: start: 20071001, end: 20071101
  4. NEURO-PATCH-DOSE-UNKNOWN (ROTIGOTINE) [Suspect]
     Indication: PARKINSON'S DISEASE
     Dosage: 6MG/24H, 1 IN 1 D, TRANSDERMAL, 4MG/24H, 1 IN 1 D, TRANSDERMAL, 2MG, 24H, 1 IN 1 D, TRANSDERMAL
     Route: 062
     Dates: start: 20071203, end: 20080101
  5. NEURO-PATCH-DOSE-UNKNOWN (ROTIGOTINE) [Suspect]
     Indication: PARKINSON'S DISEASE
     Dosage: 6MG/24H, 1 IN 1 D, TRANSDERMAL, 4MG/24H, 1 IN 1 D, TRANSDERMAL, 2MG, 24H, 1 IN 1 D, TRANSDERMAL
     Route: 062
     Dates: start: 20080113
  6. CARBO/LEVO [Concomitant]
  7. STALEVO 100 [Concomitant]
  8. NEXIUM [Concomitant]

REACTIONS (4)
  - DISTURBANCE IN ATTENTION [None]
  - FEELING JITTERY [None]
  - INCORRECT DOSE ADMINISTERED [None]
  - INSOMNIA [None]
